FAERS Safety Report 8865035 (Version 1)
Quarter: 2012Q4

REPORT INFORMATION
  Report Type: 
  Country: US (occurrence: US)
  Receive Date: 20121024
  Receipt Date: 20121024
  Transmission Date: 20130627
  Serious: No
  Sender: FDA-Public Use
  Company Number: US-AMGEN-USASP2012000707

PATIENT
  Age: 65 Year
  Sex: Female

DRUGS (12)
  1. ENBREL [Suspect]
     Indication: PRODUCT USED FOR UNKNOWN INDICATION
     Dosage: 50 mg, qwk
  2. LEVOTHYROXIN [Concomitant]
     Dosage: 75 mug, UNK
  3. METHOTREXATE [Concomitant]
     Dosage: 2.5 mg, UNK
  4. NIFEDIPINE [Concomitant]
     Dosage: 10 mg, UNK
  5. MOBIC [Concomitant]
     Dosage: 7.5 mg, UNK
  6. FOLIC ACID [Concomitant]
     Dosage: 1 mg, UNK
  7. EVOXAC [Concomitant]
     Dosage: 30 mg, UNK
  8. FLAXSEED OIL [Concomitant]
     Dosage: UNK
  9. MULTIVITAMIN [Concomitant]
     Dosage: UNK
  10. GLUCOSAMINE [Concomitant]
     Dosage: 167 mg, UNK
  11. CALCIUM + VITAMIN D [Concomitant]
     Dosage: UNK
  12. LISINOPRIL [Concomitant]
     Dosage: 40 mg, UNK

REACTIONS (1)
  - Dry eye [Unknown]
